FAERS Safety Report 7074049-7 (Version None)
Quarter: 2010Q4

REPORT INFORMATION
  Report Type: 
  Country: None (occurrence: None)
  Receive Date: 20101029
  Receipt Date: 20101025
  Transmission Date: 20110411
  Serious: Yes (Other)
  Sender: FDA-Public Use
  Company Number: CHPA2010US16793

PATIENT
  Age: 86 Year
  Sex: Female
  Weight: 58.957 kg

DRUGS (1)
  1. VOLTAREN [Suspect]
     Indication: NECK PAIN
     Dosage: 2 G, ONCE A DAY
     Route: 061
     Dates: start: 20101023, end: 20101023

REACTIONS (6)
  - DRUG ADMINISTERED AT INAPPROPRIATE SITE [None]
  - HERPES ZOSTER [None]
  - OFF LABEL USE [None]
  - PAIN [None]
  - RASH MACULAR [None]
  - WRONG TECHNIQUE IN DRUG USAGE PROCESS [None]
